FAERS Safety Report 7383212 (Version 7)
Quarter: 2015Q4

REPORT INFORMATION
  Report Type: Spontaneous
  Country: US (occurrence: US)
  Receive Date: 20100511
  Receipt Date: 20151123
  Transmission Date: 20160305
  Serious: Yes (Hospitalization, Other)
  Sender: FDA-Public Use
  Company Number: US-BAYER-201021691NA

PATIENT
  Age: 33 Year
  Sex: Female
  Weight: 68.03 kg

DRUGS (4)
  1. DOXYCYCLIN [DOXYCYCLINE] [Concomitant]
     Dosage: 100 MG, UNK
     Dates: start: 20080124
  2. TRAMADOL. [Concomitant]
     Active Substance: TRAMADOL
     Dosage: 50 MG, UNK
     Dates: start: 20080124
  3. YASMIN [Suspect]
     Active Substance: DROSPIRENONE\ETHINYL ESTRADIOL
     Indication: CONTRACEPTION
     Dosage: UNK UNK, UNK
     Route: 048
     Dates: start: 20080201, end: 20080331
  4. CHANTIX [Concomitant]
     Active Substance: VARENICLINE TARTRATE
     Dosage: 1 MG, QD
     Route: 048

REACTIONS (7)
  - Thrombosis [Recovered/Resolved]
  - Embolism arterial [None]
  - Hypoaesthesia [Recovered/Resolved]
  - Myocardial ischaemia [Unknown]
  - Arteriosclerosis coronary artery [None]
  - Myocardial infarction [Recovered/Resolved]
  - Chest pain [Recovered/Resolved]

NARRATIVE: CASE EVENT DATE: 20080304
